FAERS Safety Report 9464566 (Version 1)
Quarter: 2013Q3

REPORT INFORMATION
  Report Type: Spontaneous
  Country: CO (occurrence: CO)
  Receive Date: 20130819
  Receipt Date: 20130819
  Transmission Date: 20140515
  Serious: Yes (Hospitalization)
  Sender: FDA-Public Use
  Company Number: CO-JNJFOC-20130807824

PATIENT
  Age: 93 Year
  Sex: Male

DRUGS (1)
  1. TOPAMAC [Suspect]
     Indication: MIGRAINE
     Route: 048
     Dates: start: 20130606

REACTIONS (2)
  - Aneurysm [Unknown]
  - Respiratory disorder [Unknown]
